FAERS Safety Report 4913778-5 (Version None)
Quarter: 2006Q1

REPORT INFORMATION
  Report Type: 
  Country: None (occurrence: None)
  Receive Date: 20060216
  Receipt Date: 20051213
  Transmission Date: 20060701
  Serious: Yes (Hospitalization)
  Sender: FDA-Public Use
  Company Number: 2005-UK-02456UK

PATIENT
  Sex: Female

DRUGS (2)
  1. COMBIVIR [Suspect]
     Route: 065
  2. NEVIRAPINE [Suspect]
     Dosage: 200MG UNKNOWN
     Route: 048

REACTIONS (3)
  - RASH VESICULAR [None]
  - STEVENS-JOHNSON SYNDROME [None]
  - TOXIC EPIDERMAL NECROLYSIS [None]
